FAERS Safety Report 7756124-4 (Version None)
Quarter: 2011Q3

REPORT INFORMATION
  Report Type: 
  Country: None (occurrence: None)
  Receive Date: 20110914
  Receipt Date: 20110830
  Transmission Date: 20111222
  Serious: Yes (Hospitalization)
  Sender: FDA-Public Use
  Company Number: 2011SP002922

PATIENT
  Sex: Male

DRUGS (4)
  1. LORAZEPAM [Concomitant]
  2. CLOZAPINE [Concomitant]
  3. LATUDA [Suspect]
     Dates: start: 20110801
  4. LITHIUM [Concomitant]

REACTIONS (2)
  - ILL-DEFINED DISORDER [None]
  - ACUTE PSYCHOSIS [None]
